FAERS Safety Report 7367069-6 (Version None)
Quarter: 2011Q1

REPORT INFORMATION
  Report Type: 
  Country: None (occurrence: None)
  Receive Date: 20110322
  Receipt Date: 20110309
  Transmission Date: 20110831
  Serious: Yes (Hospitalization)
  Sender: FDA-Public Use
  Company Number: US-JNJFOC-20110305567

PATIENT
  Age: 49 Year
  Sex: Female

DRUGS (2)
  1. BENADRYL SEVERE ALLERGY PLUS SINUS HEADACHE CAPLET [Suspect]
     Indication: SINUS DISORDER
     Route: 048
  2. BENADRYL SEVERE ALLERGY PLUS SINUS HEADACHE CAPLET [Suspect]
     Indication: MULTIPLE ALLERGIES
     Route: 048

REACTIONS (1)
  - MYOCARDIAL INFARCTION [None]
